FAERS Safety Report 25015014 (Version 1)
Quarter: 2025Q1

REPORT INFORMATION
  Report Type: Spontaneous
  Country: US (occurrence: US)
  Receive Date: 20250226
  Receipt Date: 20250226
  Transmission Date: 20250409
  Serious: No
  Sender: ELI LILLY AND COMPANY
  Company Number: US-ELI_LILLY_AND_COMPANY-US202502018850

PATIENT
  Age: 69 Year
  Sex: Female

DRUGS (1)
  1. VERZENIO [Suspect]
     Active Substance: ABEMACICLIB
     Indication: Metastases to lymph nodes
     Dosage: 100 MG, BID
     Route: 048

REACTIONS (4)
  - Dyspnoea [Unknown]
  - Myalgia [Unknown]
  - Asthenia [Unknown]
  - Off label use [Unknown]
